FAERS Safety Report 22362519 (Version 1)
Quarter: 2023Q2

REPORT INFORMATION
  Report Type: Other
  Country: None (occurrence: JP)
  Receive Date: 20230524
  Receipt Date: 20230524
  Transmission Date: 20230721
  Serious: Yes (Life-Threatening, Hospitalization, Other)
  Sender: FDA-Public Use
  Company Number: JP-Breckenridge Pharmaceutical, Inc.-2141963

PATIENT
  Age: 60 Year
  Sex: Male

DRUGS (10)
  1. LEVETIRACETAM [Suspect]
     Active Substance: LEVETIRACETAM
     Indication: Encephalitis autoimmune
     Route: 048
  2. PHENYTOIN [Suspect]
     Active Substance: PHENYTOIN
  3. VANCOMYCIN HYDROCHLORIDE [Suspect]
     Active Substance: VANCOMYCIN HYDROCHLORIDE
  4. PIPERACILLIN AND TAZOBACTAM [Concomitant]
     Active Substance: PIPERACILLIN SODIUM\TAZOBACTAM SODIUM
  5. AMPICILLIN AND SULBACTAM [Concomitant]
     Active Substance: AMPICILLIN SODIUM\SULBACTAM SODIUM
  6. MEROPENEM [Concomitant]
     Active Substance: MEROPENEM
  7. SIVELESTAT [Concomitant]
     Active Substance: SIVELESTAT
  8. immunoglobulin [Concomitant]
  9. METHYLPREDNISOLONE [Concomitant]
     Active Substance: METHYLPREDNISOLONE
  10. ACYCLOVIR [Concomitant]
     Active Substance: ACYCLOVIR

REACTIONS (7)
  - Hypersensitivity [Recovering/Resolving]
  - Multiple organ dysfunction syndrome [Recovered/Resolved]
  - Hepatic enzyme increased [Recovered/Resolved]
  - Drug eruption [Recovered/Resolved]
  - Acute kidney injury [Recovered/Resolved]
  - Pleural effusion [Recovered/Resolved]
  - Disseminated intravascular coagulation [Recovered/Resolved]
